FAERS Safety Report 6208678-7 (Version None)
Quarter: 2009Q2

REPORT INFORMATION
  Report Type: 
  Country: None (occurrence: None)
  Receive Date: 20090529
  Receipt Date: 20090520
  Transmission Date: 20091009
  Serious: Yes (Other)
  Sender: FDA-Public Use
  Company Number: US-JNJFOC-20090505247

PATIENT
  Sex: Female
  Weight: 68.49 kg

DRUGS (1)
  1. INVEGA [Suspect]
     Indication: BIPOLAR DISORDER
     Route: 048

REACTIONS (4)
  - CHILLS [None]
  - FEELING ABNORMAL [None]
  - INSOMNIA [None]
  - VOMITING [None]
